FAERS Safety Report 12841132 (Version 1)
Quarter: 2016Q4

REPORT INFORMATION
  Report Type: Spontaneous
  Country: IT (occurrence: IT)
  Receive Date: 20161012
  Receipt Date: 20161012
  Transmission Date: 20170207
  Serious: Yes (Other)
  Sender: FDA-Public Use
  Company Number: IT-MYLANLABS-2016M1043596

PATIENT

DRUGS (3)
  1. VANCOMYCIN [Suspect]
     Active Substance: VANCOMYCIN
     Indication: PRODUCT USED FOR UNKNOWN INDICATION
     Dosage: 1MG/0.2ML
     Route: 031
  2. LIDOCAINE. [Concomitant]
     Active Substance: LIDOCAINE
     Indication: PRODUCT USED FOR UNKNOWN INDICATION
     Route: 031
  3. HYALURONIC ACID [Concomitant]
     Active Substance: HYALURONIC ACID
     Indication: PRODUCT USED FOR UNKNOWN INDICATION
     Route: 031

REACTIONS (2)
  - Glaucoma [Unknown]
  - Retinal vasculitis [Recovering/Resolving]
